FAERS Safety Report 10039247 (Version 1)
Quarter: 2014Q1

REPORT INFORMATION
  Report Type: Spontaneous
  Country: IT (occurrence: IT)
  Receive Date: 20140326
  Receipt Date: 20140326
  Transmission Date: 20141002
  Serious: Yes (Other)
  Sender: FDA-Public Use
  Company Number: IT-ACTAVIS-2014-05572

PATIENT
  Age: 56 Year
  Sex: Male

DRUGS (4)
  1. IRINOTECAN (UNKNOWN) [Suspect]
     Indication: COLON CANCER
     Dosage: 350 MG, CYCLICAL
     Route: 042
     Dates: start: 20080718, end: 20090121
  2. FLUOROURACIL (UNKNOWN) [Suspect]
     Indication: COLON CANCER
     Dosage: 110 MG, CYCLICAL
     Route: 042
     Dates: start: 20080718, end: 20090121
  3. AVASTIN /00848101/ [Suspect]
     Indication: COLON CANCER
     Dosage: 430 MG, CYCLICAL
     Route: 042
     Dates: start: 20080718, end: 20081005
  4. LEDERFOLIN [Concomitant]
     Indication: PRODUCT USED FOR UNKNOWN INDICATION
     Dosage: 390 MG, UNK
     Route: 042

REACTIONS (1)
  - Proteinuria [Recovered/Resolved]
